FAERS Safety Report 21884037 (Version 2)
Quarter: 2023Q1

REPORT INFORMATION
  Report Type: Other
  Country: AT (occurrence: AT)
  Receive Date: 20230119
  Receipt Date: 20230120
  Transmission Date: 20230418
  Serious: Yes (Other)
  Sender: FDA-Public Use
  Company Number: AT-ROCHE-3265565

PATIENT
  Age: 44 Year
  Sex: Female

DRUGS (5)
  1. RITUXIMAB [Suspect]
     Active Substance: RITUXIMAB
     Indication: Neuromyelitis optica spectrum disorder
     Dosage: TWO FURTHER DOSES ADMINISTRATIONS AT INTERVALS OF 6 MONTHS
     Route: 065
  2. PREDNISOLONE [Suspect]
     Active Substance: PREDNISOLONE
     Indication: Neuromyelitis optica spectrum disorder
     Dosage: UNK, (SLOWLY DECREASING DOSES)
     Route: 065
  3. METHYLPREDNISOLONE [Concomitant]
     Active Substance: METHYLPREDNISOLONE
     Route: 042
  4. SATRALIZUMAB [Concomitant]
     Active Substance: SATRALIZUMAB
     Indication: Prophylaxis
  5. PREDNISOLONE [Concomitant]
     Active Substance: PREDNISOLONE
     Indication: Neuromyelitis optica spectrum disorder
     Route: 048

REACTIONS (2)
  - Off label use [Unknown]
  - Agranulocytosis [Recovered/Resolved]
